FAERS Safety Report 17500057 (Version 2)
Quarter: 2020Q2

REPORT INFORMATION
  Report Type: Spontaneous
  Country: US (occurrence: US)
  Receive Date: 20200305
  Receipt Date: 20200501
  Transmission Date: 20200713
  Serious: Yes (Other)
  Sender: FDA-Public Use
  Company Number: US-ASTRAZENECA-2020SE30316

PATIENT
  Age: 21117 Day
  Sex: Female
  Weight: 84.7 kg

DRUGS (59)
  1. LISINOPRIL. [Concomitant]
     Active Substance: LISINOPRIL
  2. AMLODIPINE [Concomitant]
     Active Substance: AMLODIPINE BESYLATE
     Route: 065
  3. NYSTOP [Concomitant]
     Active Substance: NYSTATIN
     Route: 065
  4. METOCLOPRAMID [Concomitant]
     Active Substance: METOCLOPRAMIDE
     Route: 065
  5. LOPERAMIDE [Concomitant]
     Active Substance: LOPERAMIDE
     Route: 065
  6. CHANTIX [Concomitant]
     Active Substance: VARENICLINE TARTRATE
     Route: 065
  7. VIVELLE [Concomitant]
     Active Substance: ESTRADIOL
     Route: 065
  8. TRAMADOL. [Concomitant]
     Active Substance: TRAMADOL
     Route: 065
  9. METROGEL [Concomitant]
     Active Substance: METRONIDAZOLE
     Route: 065
  10. CLARITIN [Concomitant]
     Active Substance: LORATADINE
     Route: 065
  11. BYETTA [Suspect]
     Active Substance: EXENATIDE
     Dosage: 5MCURIES TWO TIMES A DAY
     Route: 065
     Dates: start: 20050408, end: 20050903
  12. MONTELUKAST [Concomitant]
     Active Substance: MONTELUKAST SODIUM
  13. ALLOPURINOL. [Concomitant]
     Active Substance: ALLOPURINOL
     Route: 065
  14. BACLOFEN. [Concomitant]
     Active Substance: BACLOFEN
     Route: 065
  15. MORPHINE [Concomitant]
     Active Substance: MORPHINE
     Route: 065
  16. SINGULAIR [Concomitant]
     Active Substance: MONTELUKAST SODIUM
     Route: 065
  17. INDOMETHACIN. [Concomitant]
     Active Substance: INDOMETHACIN
     Route: 065
  18. VERAPAMIL [Concomitant]
     Active Substance: VERAPAMIL HYDROCHLORIDE
     Route: 065
  19. HYDROVODONE ACETAMINOPHEN [Concomitant]
     Route: 065
  20. LANTUS [Concomitant]
     Active Substance: INSULIN GLARGINE
     Route: 065
  21. DOXYCYCLINE HYCLATE. [Concomitant]
     Active Substance: DOXYCYCLINE HYCLATE
     Route: 065
  22. VENTOLIN [Concomitant]
     Active Substance: ALBUTEROL SULFATE
     Route: 065
  23. CLONAZEPAM. [Concomitant]
     Active Substance: CLONAZEPAM
     Route: 065
  24. CLINDAMYCIN. [Concomitant]
     Active Substance: CLINDAMYCIN
     Route: 065
  25. IBUPROFEN. [Concomitant]
     Active Substance: IBUPROFEN
     Route: 065
  26. BENZONATATE. [Concomitant]
     Active Substance: BENZONATATE
  27. RANITIDINE. [Concomitant]
     Active Substance: RANITIDINE
     Route: 065
  28. TIZANIDINE. [Concomitant]
     Active Substance: TIZANIDINE
     Route: 065
  29. PATANOL [Concomitant]
     Active Substance: OLOPATADINE HYDROCHLORIDE
     Route: 065
  30. LEVOFLOXACIN. [Concomitant]
     Active Substance: LEVOFLOXACIN
     Route: 065
  31. OXYCODONE [Concomitant]
     Active Substance: OXYCODONE
     Route: 065
  32. DOXYCYCLINE. [Concomitant]
     Active Substance: DOXYCYCLINE
     Route: 065
  33. TRANSDERM [Concomitant]
     Route: 065
  34. GABAPENTIN. [Concomitant]
     Active Substance: GABAPENTIN
     Route: 065
  35. SERTRALINE [Concomitant]
     Active Substance: SERTRALINE HYDROCHLORIDE
     Route: 065
  36. EXFORGE [Concomitant]
     Active Substance: AMLODIPINE BESYLATE\VALSARTAN
     Route: 065
  37. BYETTA [Suspect]
     Active Substance: EXENATIDE
     Route: 065
     Dates: start: 200508
  38. BYETTA [Suspect]
     Active Substance: EXENATIDE
     Dosage: 5MCURIES TWO TIMES A DAY
     Route: 065
     Dates: start: 20050802
  39. TRIAMCINOLONE [Concomitant]
     Active Substance: TRIAMCINOLONE
     Route: 065
  40. TRIAMCINOLONE [Concomitant]
     Active Substance: TRIAMCINOLONE
     Route: 065
  41. GLIMEPIRIDE. [Concomitant]
     Active Substance: GLIMEPIRIDE
     Route: 065
  42. METHYLPREDNISOLONE. [Concomitant]
     Active Substance: METHYLPREDNISOLONE
     Route: 065
  43. NAPROXEN. [Concomitant]
     Active Substance: NAPROXEN
     Route: 065
  44. AVINZA [Concomitant]
     Active Substance: MORPHINE SULFATE
     Route: 065
  45. METFORMIN [Concomitant]
     Active Substance: METFORMIN HYDROCHLORIDE
  46. INVOKANA [Concomitant]
     Active Substance: CANAGLIFLOZIN
     Route: 065
  47. JANUVIA [Suspect]
     Active Substance: SITAGLIPTIN PHOSPHATE
     Route: 065
     Dates: start: 201210
  48. JANUVIA [Suspect]
     Active Substance: SITAGLIPTIN PHOSPHATE
     Route: 065
     Dates: start: 20121003, end: 20130213
  49. VICTOZA [Suspect]
     Active Substance: LIRAGLUTIDE
     Route: 065
     Dates: start: 20130213, end: 20130220
  50. NOVOLOG [Concomitant]
     Active Substance: INSULIN ASPART
     Route: 065
  51. FLUCONAZOLE. [Concomitant]
     Active Substance: FLUCONAZOLE
     Route: 065
  52. CLOTRIMAZOLE. [Concomitant]
     Active Substance: CLOTRIMAZOLE
     Route: 065
  53. DOMEBORO [Concomitant]
     Active Substance: ALUMINUM ACETATE
     Route: 065
  54. VICTOZA [Suspect]
     Active Substance: LIRAGLUTIDE
     Route: 065
     Dates: start: 201212, end: 201511
  55. VICTOZA [Suspect]
     Active Substance: LIRAGLUTIDE
     Route: 065
     Dates: start: 20130221, end: 20140630
  56. PRAVASTATIN. [Concomitant]
     Active Substance: PRAVASTATIN
     Route: 065
  57. PROAIR HFA [Concomitant]
     Active Substance: ALBUTEROL SULFATE
     Route: 065
  58. CIPROFLOXACIN. [Concomitant]
     Active Substance: CIPROFLOXACIN
     Route: 065
  59. ONDANSETRON [Concomitant]
     Active Substance: ONDANSETRON
     Route: 065

REACTIONS (1)
  - Pancreatic carcinoma [Unknown]

NARRATIVE: CASE EVENT DATE: 20150316
